FAERS Safety Report 9161670 (Version 4)
Quarter: 2014Q2

REPORT INFORMATION
  Report Type: Report from Study
  Country: ES (occurrence: ES)
  Receive Date: 20130314
  Receipt Date: 20140407
  Transmission Date: 20141212
  Serious: Yes (Hospitalization)
  Sender: FDA-Public Use
  Company Number: ES-AMGEN-ESPCT2013017507

PATIENT
  Age: 67 Year
  Sex: Female
  Weight: 71.9 kg

DRUGS (26)
  1. ETANERCEPT [Suspect]
     Indication: RHEUMATOID ARTHRITIS
     Dosage: LAST DATE AND DOSE OF DRUG ADMINISTERED:13/FEB/2013 AND DOSE 50 MG (1 IN 1 WK)
     Route: 058
     Dates: start: 20130131
  2. CIPROFLOXACIN [Concomitant]
     Dosage: 500 MG, 1X/DAY
     Route: 048
     Dates: start: 20130221, end: 20130225
  3. LEVOFLOXACIN [Concomitant]
     Indication: BRONCHITIS
     Dosage: 500 MG, 2X/DAY
     Route: 042
     Dates: start: 20130225
  4. SALBUTAMOL [Concomitant]
     Dosage: 1 INHALANT
     Route: 055
     Dates: start: 20130225, end: 20130226
  5. METHOTREXATE [Concomitant]
     Dosage: 20 MG, 1X/DAY
     Route: 048
     Dates: start: 20121116, end: 20130220
  6. METHOTREXATE [Concomitant]
     Dosage: 20 MG, WEEKLY
     Route: 048
     Dates: start: 20130318, end: 20130329
  7. METHOTREXATE [Concomitant]
     Dosage: 20 MG, UNK
     Route: 048
     Dates: start: 20130411, end: 20130414
  8. METHOTREXATE [Concomitant]
     Dosage: 10 MG, WEEKLY
     Route: 058
     Dates: start: 20130415, end: 20130512
  9. METHOTREXATE [Concomitant]
     Dosage: 20 MG, WEEKLY
     Route: 058
     Dates: start: 20130513
  10. PREDNISONE [Concomitant]
     Dosage: 7.5 MG, 1X/DAY
     Route: 048
     Dates: start: 20121127, end: 20130225
  11. PREDNISONE [Concomitant]
     Dosage: 1 DF, 1X/DAY
     Route: 048
     Dates: start: 20130411
  12. FOLIC ACID [Concomitant]
     Dosage: 5 MG, WEEKLY
     Route: 048
     Dates: end: 20130220
  13. FOLIC ACID [Concomitant]
     Dosage: 5 MG, 2X/WEEK
     Route: 048
     Dates: start: 20130318, end: 20130329
  14. FOLIC ACID [Concomitant]
     Dosage: 5 MG, 2X/WEEK
     Route: 048
     Dates: start: 20130311
  15. ALENDRONATE SODIUM [Concomitant]
     Dosage: 70 MG, WEEKLY
     Route: 048
  16. PARACETAMOL [Concomitant]
     Dosage: 1 G, 3X/DAY
     Route: 048
     Dates: start: 20121207, end: 20130107
  17. PARACETAMOL [Concomitant]
     Dosage: 1 G, UNK
     Route: 042
     Dates: start: 20130225
  18. IPRATROPIO BROMURO [Concomitant]
     Dosage: 500 UG, 3X/DAY
     Route: 055
     Dates: start: 20130225
  19. BUDESONIDE [Concomitant]
     Dosage: 500 UG, 3X/DAY
     Route: 055
     Dates: start: 20130225
  20. METHYLPREDNISOLONE [Concomitant]
     Indication: THROMBOSIS
     Dosage: 40 MG, 3X/DAY
     Route: 042
     Dates: start: 20130225, end: 20130225
  21. METHYLPREDNISOLONE [Concomitant]
     Indication: HYPOTENSION
     Dosage: 20 MG, UNK
     Route: 042
     Dates: start: 20130826
  22. ACETYLCYSTEINE [Concomitant]
     Dosage: 200 MG, 3X/DAY
     Route: 048
     Dates: start: 20130225, end: 20130302
  23. ACETYLCYSTEINE [Concomitant]
     Dosage: 600 MG, 2X/DAY
     Route: 048
     Dates: start: 20130311
  24. SALMETEROL [Concomitant]
     Indication: ASTHMA
     Dosage: 1 DF, 2X/DAY (1 PUFF (2 IN 1 D))
     Dates: start: 20130610
  25. HEPARINE                           /00027701/ [Concomitant]
     Indication: THROMBOSIS
     Dosage: UNK
     Route: 058
     Dates: start: 20130826
  26. HEPARINE                           /00027701/ [Concomitant]
     Indication: HYPOTENSION

REACTIONS (2)
  - Bronchospasm [Recovering/Resolving]
  - Bronchitis [Recovered/Resolved]
